FAERS Safety Report 10233109 (Version 1)
Quarter: 2014Q2

REPORT INFORMATION
  Report Type: Spontaneous
  Country: BR (occurrence: BR)
  Receive Date: 20140612
  Receipt Date: 20140612
  Transmission Date: 20141212
  Serious: Yes (Other)
  Sender: FDA-Public Use
  Company Number: BR-ABBVIE-14P-020-1246627-00

PATIENT
  Age: 31 Year
  Sex: Male
  Weight: 70 kg

DRUGS (5)
  1. DEPAKOTE [Suspect]
     Indication: CONVULSION
     Dosage: DAILY DOSE 1000 MG; 500 MG IN THE MORNING AND 500 MG AT NIGHT
     Route: 048
     Dates: end: 201404
  2. DEPAKOTE [Suspect]
     Dosage: DAILY DOSE: 1250MG; 500MG AT 7:00AM, 250MG AT 12:00PM AND 500MG IN THE AFTERNOON
     Route: 048
     Dates: start: 201404
  3. DEPAKOTE [Suspect]
     Dosage: DAILY DOSE: 1250MG; 500MG AT 7:00AM, 250MG AT 12:00PM AND 500MG IN THE AFTERNOON
     Route: 048
     Dates: start: 201404
  4. RISPERIDONE [Concomitant]
     Indication: SEDATIVE THERAPY
     Route: 048
     Dates: start: 2010
  5. RISPERIDONE [Concomitant]
     Indication: ANXIOLYTIC THERAPY

REACTIONS (4)
  - Petit mal epilepsy [Recovered/Resolved]
  - Convulsion [Recovered/Resolved]
  - Abdominal pain upper [Recovered/Resolved]
  - Product quality issue [Unknown]
